FAERS Safety Report 12552631 (Version 1)
Quarter: 2016Q3

REPORT INFORMATION
  Report Type: Report from Study
  Country: FR (occurrence: FR)
  Receive Date: 20160713
  Receipt Date: 20160713
  Transmission Date: 20161109
  Serious: Yes (Death, Life-Threatening, Hospitalization, Other)
  Sender: FDA-Public Use
  Company Number: PHHO2012FR021791

PATIENT
  Age: 78 Year
  Sex: Male
  Weight: 71 kg

DRUGS (1)
  1. DABRAFENIB [Suspect]
     Active Substance: DABRAFENIB
     Indication: METASTATIC MALIGNANT MELANOMA
     Dosage: 150 MG, BID
     Route: 048
     Dates: start: 20110808, end: 20120120

REACTIONS (2)
  - Myocardial infarction [Fatal]
  - Acute coronary syndrome [Fatal]

NARRATIVE: CASE EVENT DATE: 20120103
